FAERS Safety Report 5102883-9 (Version None)
Quarter: 2006Q3

REPORT INFORMATION
  Report Type: 
  Country: None (occurrence: None)
  Receive Date: 20060908
  Receipt Date: 20060901
  Transmission Date: 20061208
  Serious: Yes (Hospitalization)
  Sender: FDA-Public Use
  Company Number: 29960

PATIENT
  Age: 65 Year
  Sex: Male

DRUGS (1)
  1. ALDARA [Suspect]
     Indication: BASAL CELL CARCINOMA
     Dosage: 1 SACHET, 5 IN  WEEK(S), TOPICAL
     Route: 061
     Dates: start: 20060101, end: 20060101

REACTIONS (10)
  - APPLICATION SITE ERYTHEMA [None]
  - APPLICATION SITE INFLAMMATION [None]
  - APPLICATION SITE REACTION [None]
  - ASTHENIA [None]
  - DIZZINESS [None]
  - FATIGUE [None]
  - HYPOTENSION [None]
  - PLATELET COUNT DECREASED [None]
  - SCAR [None]
  - TREATMENT NONCOMPLIANCE [None]
